FAERS Safety Report 11151636 (Version 1)
Quarter: 2015Q2

REPORT INFORMATION
  Report Type: Spontaneous
  Country: US (occurrence: None)
  Receive Date: 20150528
  Receipt Date: 20150528
  Transmission Date: 20150821
  Serious: Yes (Other)
  Sender: FDA-Public Use
  Company Number: HA15-135-AE

PATIENT
  Age: 38 Year
  Sex: Male
  Weight: 124.74 kg

DRUGS (7)
  1. PROZAC [Concomitant]
     Active Substance: FLUOXETINE HYDROCHLORIDE
  2. CITALOPRAM [Suspect]
     Active Substance: CITALOPRAM HYDROBROMIDE
     Dosage: ORAL
     Route: 048
  3. RISPERDAL [Concomitant]
     Active Substance: RISPERIDONE
  4. LUVOX [Concomitant]
     Active Substance: FLUVOXAMINE MALEATE
  5. SAPHRIS [Concomitant]
     Active Substance: ASENAPINE MALEATE
  6. ZOLOFT [Concomitant]
     Active Substance: SERTRALINE HYDROCHLORIDE
  7. KLONOPIN [Concomitant]
     Active Substance: CLONAZEPAM

REACTIONS (12)
  - Thinking abnormal [None]
  - Vomiting [None]
  - Hyperhidrosis [None]
  - Hypoaesthesia oral [None]
  - Nausea [None]
  - Abdominal pain upper [None]
  - Dyskinesia [None]
  - Suicidal ideation [None]
  - Mania [None]
  - Palpitations [None]
  - Blood glucose increased [None]
  - Discomfort [None]
